FAERS Safety Report 17821184 (Version 4)
Quarter: 2022Q3

REPORT INFORMATION
  Report Type: Spontaneous
  Country: US (occurrence: US)
  Receive Date: 20200525
  Receipt Date: 20220809
  Transmission Date: 20221027
  Serious: Yes (Death, Life-Threatening, Hospitalization, Other)
  Sender: FDA-Public Use
  Company Number: US-SA-2020SA129680

PATIENT
  Age: 65 Year
  Sex: Male

DRUGS (6)
  1. TAMSULOSIN HYDROCHLORIDE [Suspect]
     Active Substance: TAMSULOSIN HYDROCHLORIDE
     Indication: Suicide attempt
     Dosage: 12 MG, TOTAL; 30 DF, TABLET 0.4 MG EACH
     Route: 048
  2. TAMSULOSIN HYDROCHLORIDE [Suspect]
     Active Substance: TAMSULOSIN HYDROCHLORIDE
     Dosage: 0.4 MG, QD; STRENGTH 0.4 MG
  3. GENVOYA [Suspect]
     Active Substance: COBICISTAT\ELVITEGRAVIR\EMTRICITABINE\TENOFOVIR ALAFENAMIDE FUMARATE
     Indication: Suicide attempt
     Dosage: 30 DF, TOTAL (STRENGTH 150-150-200-10 MG)
     Route: 048
  4. GENVOYA [Suspect]
     Active Substance: COBICISTAT\ELVITEGRAVIR\EMTRICITABINE\TENOFOVIR ALAFENAMIDE FUMARATE
     Dosage: 510 MG, QD, STRENGTH 150-150-200-10 MG
  5. PREZISTA [Suspect]
     Active Substance: DARUNAVIR ETHANOLATE
     Indication: Suicide attempt
     Dosage: 30 DF, TOTAL (STRENGTH: 800 MG EACH TABLET)
     Route: 048
  6. PREZISTA [Suspect]
     Active Substance: DARUNAVIR ETHANOLATE
     Dosage: 800 MG, QD

REACTIONS (10)
  - Pulseless electrical activity [Fatal]
  - Toxicity to various agents [Fatal]
  - Blood pressure decreased [Fatal]
  - Completed suicide [Fatal]
  - Bundle branch block right [Fatal]
  - Cardiac arrest [Fatal]
  - Overdose [Fatal]
  - Mental status changes [Fatal]
  - Haemodynamic instability [Unknown]
  - Intentional overdose [Unknown]
